FAERS Safety Report 7175445-X (Version None)
Quarter: 2010Q4

REPORT INFORMATION
  Report Type: 
  Country: None (occurrence: None)
  Receive Date: 20101220
  Receipt Date: 20100315
  Transmission Date: 20110411
  Serious: No
  Sender: FDA-Public Use
  Company Number: US-AMGEN-TCS399904

PATIENT

DRUGS (1)
  1. ENBREL [Suspect]
     Indication: PSORIATIC ARTHROPATHY
     Dosage: 25 MG, QWK
     Route: 058

REACTIONS (5)
  - ABDOMINAL PAIN [None]
  - COUGH [None]
  - ERYTHEMA [None]
  - FATIGUE [None]
  - SWELLING [None]
